FAERS Safety Report 7790739-2 (Version None)
Quarter: 2011Q3

REPORT INFORMATION
  Report Type: 
  Country: None (occurrence: None)
  Receive Date: 20110930
  Receipt Date: 20110926
  Transmission Date: 20111222
  Serious: Yes (Other)
  Sender: FDA-Public Use
  Company Number: US-PFIZER INC-2007069564

PATIENT
  Sex: Female
  Weight: 49.887 kg

DRUGS (6)
  1. LYRICA [Suspect]
     Indication: POST HERPETIC NEURALGIA
     Dosage: 75 MG, 2X/DAY
     Route: 048
     Dates: start: 20060426
  2. ACTONEL [Concomitant]
     Dosage: UNK, ONCE A WEEK
  3. LYRICA [Suspect]
     Indication: HERPES ZOSTER
  4. ESTRADIOL [Concomitant]
     Dosage: 1 MG, UNK
  5. LEVOXYL [Concomitant]
     Dosage: 75 UG, UNK
  6. MECLIZINE [Concomitant]
     Dosage: UNK

REACTIONS (23)
  - PALPITATIONS [None]
  - EAR INFECTION [None]
  - VISION BLURRED [None]
  - BALANCE DISORDER [None]
  - APPETITE DISORDER [None]
  - SOMNOLENCE [None]
  - AMNESIA [None]
  - OSTEOARTHRITIS [None]
  - POLLAKIURIA [None]
  - WEIGHT DECREASED [None]
  - NIGHT SWEATS [None]
  - CHILLS [None]
  - IMPAIRED DRIVING ABILITY [None]
  - ASTHENIA [None]
  - DIZZINESS [None]
  - NAUSEA [None]
  - DRUG INEFFECTIVE [None]
  - THINKING ABNORMAL [None]
  - EYE PAIN [None]
  - URINE OUTPUT INCREASED [None]
  - FATIGUE [None]
  - PAIN [None]
  - MIDDLE INSOMNIA [None]
